FAERS Safety Report 19694357 (Version 1)
Quarter: 2021Q3

REPORT INFORMATION
  Report Type: Spontaneous
  Country: CA (occurrence: CA)
  Receive Date: 20210813
  Receipt Date: 20210813
  Transmission Date: 20211014
  Serious: Yes (Hospitalization)
  Sender: FDA-Public Use
  Company Number: CA-TEVA-2021-CA-1939940

PATIENT
  Age: 25 Year
  Sex: Male

DRUGS (7)
  1. ZYPREXA [Concomitant]
     Active Substance: OLANZAPINE
  2. CIPROFLOXACIN. [Suspect]
     Active Substance: CIPROFLOXACIN
     Indication: PROPHYLAXIS
     Route: 065
  3. INFLIXIMAB [Concomitant]
     Active Substance: INFLIXIMAB
     Indication: CROHN^S DISEASE
     Route: 042
  4. METRONIDAZOLE. [Concomitant]
     Active Substance: METRONIDAZOLE
     Indication: PROPHYLAXIS
  5. IRON [Concomitant]
     Active Substance: IRON
  6. PANTOPRAZOLE SODIUM. [Concomitant]
     Active Substance: PANTOPRAZOLE SODIUM
  7. ASACOL [Concomitant]
     Active Substance: MESALAMINE
     Dosage: 6 MILLIGRAM DAILY;

REACTIONS (2)
  - Product use in unapproved indication [Not Recovered/Not Resolved]
  - Psychotic disorder [Not Recovered/Not Resolved]
